FAERS Safety Report 12853365 (Version 1)
Quarter: 2016Q4

REPORT INFORMATION
  Report Type: Spontaneous
  Country: US (occurrence: US)
  Receive Date: 20161017
  Receipt Date: 20161017
  Transmission Date: 20170207
  Serious: Yes (Disabling)
  Sender: FDA-Public Use
  Company Number: None

PATIENT
  Age: 32 Year
  Sex: Female
  Weight: 83.99 kg

DRUGS (1)
  1. MIRENA [Suspect]
     Active Substance: LEVONORGESTREL

REACTIONS (5)
  - Abdominal pain lower [None]
  - Muscle spasms [None]
  - Impaired work ability [None]
  - Gait disturbance [None]
  - Quality of life decreased [None]

NARRATIVE: CASE EVENT DATE: 20161012
